FAERS Safety Report 22303409 (Version 2)
Quarter: 2023Q2

REPORT INFORMATION
  Report Type: Report from Study
  Country: GB (occurrence: GB)
  Receive Date: 20230510
  Receipt Date: 20230621
  Transmission Date: 20230721
  Serious: Yes (Hospitalization)
  Sender: FDA-Public Use
  Company Number: GB-ROCHE-3342884

PATIENT
  Age: 52 Year
  Sex: Female

DRUGS (26)
  1. DOCETAXEL [Suspect]
     Active Substance: DOCETAXEL
     Indication: HER2 positive breast cancer
     Dosage: CYCLE 1
     Route: 042
     Dates: start: 20160524, end: 20160524
  2. DOCETAXEL [Suspect]
     Active Substance: DOCETAXEL
     Dosage: CYCLE 1
     Route: 042
     Dates: start: 20160615, end: 20160615
  3. DOCETAXEL [Suspect]
     Active Substance: DOCETAXEL
     Dosage: CYCLE 7
     Route: 042
     Dates: start: 20160706, end: 20161026
  4. TRASTUZUMAB [Suspect]
     Active Substance: TRASTUZUMAB
     Indication: HER2 positive breast cancer
     Dosage: 525 MG, EVERY 3 WEEKS
     Route: 042
     Dates: start: 20160524, end: 20170412
  5. TRASTUZUMAB [Suspect]
     Active Substance: TRASTUZUMAB
     Dosage: SUBSEQUENT DOSE
     Dates: start: 20160615
  6. TRASTUZUMAB [Suspect]
     Active Substance: TRASTUZUMAB
     Dosage: SUBSEQUENT DOSE
     Dates: start: 20161026
  7. TRASTUZUMAB [Suspect]
     Active Substance: TRASTUZUMAB
     Dosage: SUBSEQUENT DOSE
     Dates: start: 20161116
  8. CAPECITABINE [Suspect]
     Active Substance: CAPECITABINE
     Indication: HER2 positive breast cancer
     Dosage: SUBSEQUENT DOSE OF  ORALLY CAPECITABINE 1650 MG, TWICE DAILY WAS ADMINISTERED ON 31/JAN/2018 TO 07/N
     Route: 048
     Dates: start: 20170905, end: 20210427
  9. CAPECITABINE [Suspect]
     Active Substance: CAPECITABINE
     Dosage: SUBSEQUENT DOSE
     Route: 048
     Dates: start: 20180131, end: 20201107
  10. CAPECITABINE [Suspect]
     Active Substance: CAPECITABINE
     Dosage: SUBSEQUENT DOSE
     Route: 048
     Dates: start: 20201209, end: 20210427
  11. LETROZOLE [Suspect]
     Active Substance: LETROZOLE
     Indication: HER2 positive breast cancer
     Dosage: 2.5 MG, 1X/DAY
     Route: 048
     Dates: start: 20211012
  12. PERTUZUMAB [Suspect]
     Active Substance: PERTUZUMAB
     Indication: HER2 positive breast cancer
     Dosage: CYCLE 1
     Route: 042
     Dates: start: 20160523, end: 20160523
  13. PERTUZUMAB [Suspect]
     Active Substance: PERTUZUMAB
     Dosage: CYCLE 5
     Route: 042
     Dates: start: 20160615, end: 20160914
  14. PERTUZUMAB [Suspect]
     Active Substance: PERTUZUMAB
     Dosage: PLANNED NUMBER OF CYCLES COMPLETED
     Route: 042
     Dates: start: 20161026, end: 20170503
  15. TRASTUZUMAB DERUXTECAN [Suspect]
     Active Substance: TRASTUZUMAB DERUXTECAN
     Indication: HER2 positive breast cancer
     Dosage: ONCE EVERY WEEK
     Dates: start: 20210809
  16. ADO-TRASTUZUMAB EMTANSINE [Suspect]
     Active Substance: ADO-TRASTUZUMAB EMTANSINE
     Indication: HER2 positive breast cancer
     Dosage: 3.6 MG/KG, EVERY 3 WEEKS
     Route: 042
     Dates: start: 20170524, end: 20170816
  17. CALCIUM CARBONATE\CHOLECALCIFEROL [Concomitant]
     Active Substance: CALCIUM CARBONATE\CHOLECALCIFEROL
     Dosage: 10 MG
     Route: 048
     Dates: start: 20170117
  18. COVID-19 VACCINE [Concomitant]
     Indication: COVID-19 immunisation
     Dosage: UNK
  19. DENOSUMAB [Concomitant]
     Active Substance: DENOSUMAB
     Indication: Metastases to bone
     Dosage: 120 MG, EVERY 3 WEEKS
     Route: 042
     Dates: start: 20160523
  20. DEXAMETHASONE [Concomitant]
     Active Substance: DEXAMETHASONE
     Dosage: BID FOR 3 DAYS, START DAY BEFORE CHEMO
     Route: 048
     Dates: start: 20160523, end: 20161004
  21. DOMPERIDONE [Concomitant]
     Active Substance: DOMPERIDONE
     Indication: Nausea
     Dosage: 10 MG
     Route: 048
     Dates: end: 20211125
  22. LOPERAMIDE [Concomitant]
     Active Substance: LOPERAMIDE
     Indication: Diarrhoea
     Dosage: 2 MG, EVERY 3 WEEKS
     Route: 048
     Dates: start: 20170905, end: 20200225
  23. ONDANSETRON [Concomitant]
     Active Substance: ONDANSETRON
     Indication: Nausea
     Dosage: 8 MG, EVERY 3 WEEKS
     Route: 065
     Dates: start: 20160524, end: 20201026
  24. ONDANSETRON [Concomitant]
     Active Substance: ONDANSETRON
     Dosage: UNK, 2X/DAY
     Route: 048
     Dates: start: 20160523
  25. TINZAPARIN [Concomitant]
     Active Substance: TINZAPARIN
     Indication: Thrombosis
     Dosage: 4500 U
     Route: 058
     Dates: start: 20181127, end: 20181130
  26. ZOLEDRONIC ACID [Concomitant]
     Active Substance: ZOLEDRONIC ACID
     Indication: Metastases to bone
     Dosage: 4 MG, EVERY 3 WEEKS
     Route: 042
     Dates: start: 20170926, end: 20200225

REACTIONS (1)
  - Urinary tract infection [Recovered/Resolved]

NARRATIVE: CASE EVENT DATE: 20230301
